FAERS Safety Report 15308328 (Version 1)
Quarter: 2018Q3

REPORT INFORMATION
  Report Type: Spontaneous
  Country: DE (occurrence: DE)
  Receive Date: 20180822
  Receipt Date: 20180822
  Transmission Date: 20181010
  Serious: Yes (Hospitalization)
  Sender: FDA-Public Use
  Company Number: DE-ASTRAZENECA-2018SF05181

PATIENT
  Sex: Female
  Weight: 113 kg

DRUGS (1)
  1. ALVESCO [Suspect]
     Active Substance: CICLESONIDE
     Route: 055
     Dates: start: 201107

REACTIONS (3)
  - Varicose vein [Unknown]
  - Pulmonary embolism [Unknown]
  - Deep vein thrombosis [Unknown]
